FAERS Safety Report 11816465 (Version 1)
Quarter: 2015Q4

REPORT INFORMATION
  Report Type: Spontaneous
  Country: JP (occurrence: JP)
  Receive Date: 20151209
  Receipt Date: 20151209
  Transmission Date: 20160305
  Serious: Yes (Life-Threatening)
  Sender: FDA-Public Use
  Company Number: JP-ROCHE-1673820

PATIENT
  Age: 69 Year
  Sex: Male
  Weight: 60 kg

DRUGS (4)
  1. ELPLAT [Suspect]
     Active Substance: OXALIPLATIN
     Indication: COLON CANCER
     Route: 041
     Dates: start: 20150831, end: 20151117
  2. DECADRON [Concomitant]
     Active Substance: DEXAMETHASONE
     Indication: PROPHYLAXIS
     Route: 041
     Dates: start: 20150831, end: 20151117
  3. XELODA [Suspect]
     Active Substance: CAPECITABINE
     Indication: COLON CANCER
     Dosage: ADMINISTER THE SEVENTH ON THE 14TH. LAST DOSE ADMINISTERED PRIOR TO EVENT ON 16/NOV/2015
     Route: 048
     Dates: start: 20150831
  4. ALOXI [Concomitant]
     Active Substance: PALONOSETRON HYDROCHLORIDE
     Indication: PROPHYLAXIS
     Route: 041
     Dates: start: 20150831, end: 20151107

REACTIONS (4)
  - Muscle haemorrhage [Unknown]
  - Thrombocytopenia [Recovering/Resolving]
  - Purpura [Recovering/Resolving]
  - Subcutaneous haematoma [Unknown]

NARRATIVE: CASE EVENT DATE: 20151126
